FAERS Safety Report 24192956 (Version 1)
Quarter: 2024Q3

REPORT INFORMATION
  Report Type: Spontaneous
  Country: GB (occurrence: GB)
  Receive Date: 20240809
  Receipt Date: 20240809
  Transmission Date: 20241016
  Serious: Yes (Hospitalization, Other)
  Sender: AMGEN
  Company Number: GB-AMGEN-GBRSP2024153293

PATIENT
  Age: 75 Year

DRUGS (12)
  1. ARANESP [Suspect]
     Active Substance: DARBEPOETIN ALFA
     Indication: Product used for unknown indication
     Dosage: 30MICROGRAMS/0.3ML SOLUTION
     Route: 065
  2. DAPAGLIFLOZIN [Concomitant]
     Active Substance: DAPAGLIFLOZIN
     Dosage: 10 MILLIGRAM, QD
  3. EDOXABAN [Concomitant]
     Active Substance: EDOXABAN
     Dosage: 30 MILLIGRAM, QD
  4. FOLIC ACID [Concomitant]
     Active Substance: FOLIC ACID
     Dosage: 5 MILLIGRAM, QD (EACH MORNING)
  5. METFORMIN [Concomitant]
     Active Substance: METFORMIN HYDROCHLORIDE
     Dosage: 4 DOSAGE FORM, QD (500 MG TABLETS TAKE 2 IN THE MORNING AND 2 AT NIGHT )
  6. ATORVASTATIN [Concomitant]
     Active Substance: ATORVASTATIN
     Dosage: 10 MILLIGRAM, QD (PATIENT STATES TAKES EVERY NIGHT (ON))
  7. FUROSEMIDE [Concomitant]
     Active Substance: FUROSEMIDE
     Dosage: 40 MILLIGRAM, QD (EACH MORNING)
  8. ACETAMINOPHEN [Concomitant]
     Active Substance: ACETAMINOPHEN
     Dosage: 500 MILLIGRAM (ONE OR TWO TO BE TAKEN FOUR TIMES A DAYWHEN REQUIRED)
  9. VENTOLIN [Concomitant]
     Active Substance: ALBUTEROL SULFATE
     Dosage: 2 DOSAGE FORM (100 MICROGRAMS / DOSE EVOHALER INHALE 2 DOSES AS NEEDED - PT STATES HAS 2 PUFFS PRN)
  10. HYPROMELLOSES [Concomitant]
     Active Substance: HYPROMELLOSES
     Dosage: 0.3 PERCENT, USE AS DIRECTED
  11. RAMIPRIL [Concomitant]
     Active Substance: RAMIPRIL
     Dosage: 1.25 MILLIGRAM, QD (AT NIGHT)
  12. RAMIPRIL [Concomitant]
     Active Substance: RAMIPRIL
     Dosage: 2.25 MILLIGRAM, QD (EACH NIGHT AS PER HOSPITAL LETTER)

REACTIONS (1)
  - Fatigue [Recovered/Resolved]
